FAERS Safety Report 23260102 (Version 1)
Quarter: 2023Q4

REPORT INFORMATION
  Report Type: Spontaneous
  Country: US (occurrence: US)
  Receive Date: 20231204
  Receipt Date: 20231204
  Transmission Date: 20240110
  Serious: No
  Sender: FDA-Public Use
  Company Number: US-009507513-2311USA004167

PATIENT
  Age: 77 Year
  Sex: Male

DRUGS (1)
  1. KEYTRUDA [Suspect]
     Active Substance: PEMBROLIZUMAB
     Indication: Neuroendocrine carcinoma of the skin
     Dosage: UNK UNK, Q3W
     Route: 042
     Dates: start: 20230918

REACTIONS (3)
  - Joint swelling [Recovering/Resolving]
  - Gait inability [Recovering/Resolving]
  - Gouty arthritis [Recovering/Resolving]

NARRATIVE: CASE EVENT DATE: 20230901
